FAERS Safety Report 25502477 (Version 1)
Quarter: 2025Q3

REPORT INFORMATION
  Report Type: Spontaneous
  Country: CN (occurrence: CN)
  Receive Date: 20250702
  Receipt Date: 20250702
  Transmission Date: 20251020
  Serious: Yes (Other)
  Sender: HISUN PHARMACEUTICALS USA INC
  Company Number: CN-Hisun Pharmaceuticals USA Inc.-000478

PATIENT
  Age: 47 Year
  Sex: Female
  Weight: 62 kg

DRUGS (2)
  1. DACTINOMYCIN [Suspect]
     Active Substance: DACTINOMYCIN
     Indication: Gestational trophoblastic tumour
     Dosage: 0.35 MG
     Route: 042
     Dates: start: 20250521, end: 20250527
  2. FLUOROURACIL [Suspect]
     Active Substance: FLUOROURACIL
     Indication: Gestational trophoblastic tumour
     Dosage: 1.65 G
     Route: 042
     Dates: start: 20250521, end: 20250527

REACTIONS (4)
  - Myelosuppression [Unknown]
  - Hyperpyrexia [Unknown]
  - Mouth ulceration [Unknown]
  - Product use in unapproved indication [Unknown]

NARRATIVE: CASE EVENT DATE: 20250521
